FAERS Safety Report 17210834 (Version 1)
Quarter: 2019Q4

REPORT INFORMATION
  Report Type: Spontaneous
  Country: DK (occurrence: DK)
  Receive Date: 20191227
  Receipt Date: 20191227
  Transmission Date: 20200122
  Serious: Yes (Hospitalization)
  Sender: FDA-Public Use
  Company Number: DK-VERTEX PHARMACEUTICALS-2019-013250

PATIENT
  Age: 52 Year
  Sex: Male
  Weight: 95 kg

DRUGS (12)
  1. OMEPRAZOLE. [Concomitant]
     Active Substance: OMEPRAZOLE
     Indication: GASTRIC ULCER
     Dosage: STYRKE: 20 MG
     Route: 048
     Dates: start: 20140519
  2. ALENDRONATE [Concomitant]
     Active Substance: ALENDRONATE SODIUM
     Indication: PRODUCT USED FOR UNKNOWN INDICATION
     Dosage: STYRKE, DOSIS OG STARTDATO: UKENDTE
     Route: 048
  3. PREDNISOLONE. [Concomitant]
     Active Substance: PREDNISOLONE
     Indication: IMMUNOSUPPRESSION
     Dosage: STYRKE: 5 MG
     Route: 048
     Dates: start: 20130527
  4. SYMKEVI [Suspect]
     Active Substance: IVACAFTOR\TEZACAFTOR
     Indication: CYSTIC FIBROSIS
     Dosage: 1 DOSAGE FORM (100/150 MG), AM
     Route: 048
     Dates: start: 20190626, end: 20190915
  5. KALYDECO [Suspect]
     Active Substance: IVACAFTOR
     Indication: CYSTIC FIBROSIS
     Dosage: 150 MILLIGRAM, PM
     Route: 048
     Dates: start: 20190626, end: 20190915
  6. AZTREONAM. [Concomitant]
     Active Substance: AZTREONAM
     Indication: CYSTIC FIBROSIS
     Dosage: STYRKE: 75 MG
     Route: 055
     Dates: start: 20130718
  7. CERTOLIZUMAB [Concomitant]
     Active Substance: CERTOLIZUMAB
     Indication: RHEUMATOID ARTHRITIS
     Dosage: 200 MILLIGRAM
     Dates: start: 20180628
  8. SULFASALAZIN HEXAL [Concomitant]
     Active Substance: SULFASALAZINE
     Indication: RHEUMATOID ARTHRITIS
     Dosage: STYRKE: 500 MG
     Route: 048
     Dates: start: 20190314
  9. TRAMADOL KRKA [Concomitant]
     Indication: PAIN
     Dosage: 1-2 TABLETTER PRN; MAX 3 TABLETS QD
     Route: 048
     Dates: start: 20130718
  10. CIPRALEX [Concomitant]
     Active Substance: ESCITALOPRAM OXALATE
     Indication: DEPRESSION
     Dosage: STYRKE: 10 MG
     Route: 048
     Dates: start: 20161221
  11. AZITHROMYCIN KRKA [Concomitant]
     Indication: PNEUMONIA
     Dosage: STYRKE: 500 MG
     Route: 048
     Dates: start: 20161028
  12. URSOCHOL [Concomitant]
     Active Substance: URSODIOL
     Indication: LIVER DISORDER
     Dosage: STYRKE: 250 MG
     Route: 048
     Dates: start: 20150130

REACTIONS (2)
  - Rheumatoid arthritis [Recovering/Resolving]
  - Arthralgia [Recovering/Resolving]

NARRATIVE: CASE EVENT DATE: 20190801
